FAERS Safety Report 7184426-1 (Version None)
Quarter: 2010Q4

REPORT INFORMATION
  Report Type: 
  Country: None (occurrence: None)
  Receive Date: 20101222
  Receipt Date: 20100519
  Transmission Date: 20110411
  Serious: No
  Sender: FDA-Public Use
  Company Number: US-AMGEN-TCS413385

PATIENT

DRUGS (1)
  1. ENBREL [Suspect]
     Indication: PSORIASIS
     Dosage: 25 MG, 3 TIMES/WK
     Route: 058
     Dates: start: 20050413

REACTIONS (4)
  - ARTHRITIS [None]
  - HYPOACUSIS [None]
  - INJECTION SITE PAIN [None]
  - JOINT LOCK [None]
